FAERS Safety Report 10160454 (Version 1)
Quarter: 2014Q2

REPORT INFORMATION
  Report Type: Spontaneous
  Country: GB (occurrence: GB)
  Receive Date: 20140508
  Receipt Date: 20140508
  Transmission Date: 20141212
  Serious: Yes (Other)
  Sender: FDA-Public Use
  Company Number: GB-ABBVIE-14P-167-1235489-00

PATIENT
  Sex: Female

DRUGS (1)
  1. HUMIRA [Suspect]
     Indication: CROHN^S DISEASE
     Dates: start: 201305

REACTIONS (5)
  - Abdominal adhesions [Not Recovered/Not Resolved]
  - Hair texture abnormal [Unknown]
  - Infection [Unknown]
  - Headache [Unknown]
  - Laceration [Unknown]
